FAERS Safety Report 5064906-5 (Version None)
Quarter: 2006Q3

REPORT INFORMATION
  Report Type: 
  Country: None (occurrence: None)
  Receive Date: 20060727
  Receipt Date: 20060727
  Transmission Date: 20061208
  Serious: Yes (Life-Threatening)
  Sender: FDA-Public Use
  Company Number: None

PATIENT
  Age: 33 Year
  Sex: Female
  Weight: 65.7716 kg

DRUGS (2)
  1. ORTHO CYCLEN-28 [Suspect]
  2. SPRINTEC [Suspect]

REACTIONS (18)
  - APATHY [None]
  - CONTUSION [None]
  - DEPRESSION [None]
  - DISORIENTATION [None]
  - EYE DISORDER [None]
  - FATIGUE [None]
  - FEELING ABNORMAL [None]
  - HEADACHE [None]
  - IMPAIRED DRIVING ABILITY [None]
  - INSOMNIA [None]
  - MENORRHAGIA [None]
  - MIGRAINE [None]
  - NAUSEA [None]
  - PHARMACEUTICAL PRODUCT COMPLAINT [None]
  - SINUS HEADACHE [None]
  - STUPOR [None]
  - SUICIDAL IDEATION [None]
  - VERTIGO [None]
